FAERS Safety Report 24215266 (Version 1)
Quarter: 2024Q3

REPORT INFORMATION
  Report Type: Spontaneous
  Country: US (occurrence: US)
  Receive Date: 20240816
  Receipt Date: 20240816
  Transmission Date: 20241017
  Serious: Yes (Other)
  Sender: STRIDES
  Company Number: US-STRIDES ARCOLAB LIMITED-2024SP010209

PATIENT

DRUGS (10)
  1. URSODIOL [Suspect]
     Active Substance: URSODIOL
     Indication: Product used for unknown indication
     Dosage: UNK (THE PATIENT RECEIVED ORAL URSODEOXYCHOLIC-ACID (URSODIOL) 300MG TWICE DAILY FOR AOSD DURING PRE
     Route: 064
  2. AZATHIOPRINE [Suspect]
     Active Substance: AZATHIOPRINE
     Indication: Product used for unknown indication
     Dosage: UNK (THE PATIENT RECEIVED ORAL AZATHIOPRINE 25MG DAILY FOR AOSD DURING PREGNANCY)
     Route: 064
  3. NITROFURANTOIN [Suspect]
     Active Substance: NITROFURANTOIN
     Indication: Product used for unknown indication
     Dosage: UNK (THE PATIENT RECEIVED NITROFURANTOIN FOR UTI DURING PREGNANCY)
     Route: 064
  4. METHYLPREDNISOLONE [Suspect]
     Active Substance: METHYLPREDNISOLONE
     Indication: Product used for unknown indication
     Dosage: UNK (THE PATIENT RECEIVED ORAL METHYLPREDNISOLONE 24MG DAILY FOR AOSD DURING PREGNANCY)
     Route: 064
  5. METHYLPREDNISOLONE [Suspect]
     Active Substance: METHYLPREDNISOLONE
     Dosage: UNK (THE PATIENT RECEIVED IV METHYLPREDNISOLONE 48MG DAILY FOR AOSD DURING PREGNANCY)
     Route: 064
  6. ANAKINRA [Suspect]
     Active Substance: ANAKINRA
     Indication: Product used for unknown indication
     Dosage: UNK (THE PATIENT RECEIVED SC ANAKINRA 100MG DAILY FOR AOSD DURING PREGNANCY)
     Route: 064
  7. ANAKINRA [Suspect]
     Active Substance: ANAKINRA
     Dosage: UNK (THE PATIENT RECEIVED ANAKINRA FOR AOSD DURING PREGNANCY)
     Route: 064
  8. ATOVAQUONE [Suspect]
     Active Substance: ATOVAQUONE
     Indication: Product used for unknown indication
     Dosage: UNK (THE PATIENT RECEIVED ORAL ATOVAQUONE 1500MG DAILY FOR PNEUMOCYSTIS JIROVECII PNEUMONIA PROPHYLA
     Route: 064
  9. NOREPINEPHRINE BITARTRATE [Suspect]
     Active Substance: NOREPINEPHRINE BITARTRATE
     Indication: Product used for unknown indication
     Dosage: UNK (THE PATIENT RECEIVED IV NOREPINEPHRINE (NOREPINEPHRINE BITARTRATE) DURING PREGNANCY)
     Route: 064
  10. NEUPOGEN [Suspect]
     Active Substance: FILGRASTIM
     Indication: Product used for unknown indication
     Dosage: UNK (THE PATIENT RECEIVED FILGRASTIM (NEUPOGEN) FOR NEUTROPENIA DURING PREGNANCY)
     Route: 064

REACTIONS (2)
  - Premature baby [Unknown]
  - Foetal exposure during pregnancy [Unknown]
